FAERS Safety Report 19276256 (Version 1)
Quarter: 2021Q2

REPORT INFORMATION
  Report Type: Spontaneous
  Country: SG (occurrence: SG)
  Receive Date: 20210520
  Receipt Date: 20210520
  Transmission Date: 20210717
  Serious: Yes (Hospitalization)
  Sender: FDA-Public Use
  Company Number: SG-BAUSCH-BL-2021-017205

PATIENT
  Age: 36 Year
  Sex: Female

DRUGS (2)
  1. METRONIDAZOLE. [Suspect]
     Active Substance: METRONIDAZOLE
     Indication: PRODUCT USED FOR UNKNOWN INDICATION
     Route: 065
  2. ARCOXIA [Suspect]
     Active Substance: ETORICOXIB
     Indication: PRODUCT USED FOR UNKNOWN INDICATION
     Route: 048

REACTIONS (5)
  - Fixed eruption [Not Recovered/Not Resolved]
  - Oral mucosal eruption [Not Recovered/Not Resolved]
  - Mouth ulceration [Not Recovered/Not Resolved]
  - Vaginal ulceration [Not Recovered/Not Resolved]
  - Genital rash [Not Recovered/Not Resolved]

NARRATIVE: CASE EVENT DATE: 20210309
